FAERS Safety Report 8969260 (Version 1)
Quarter: 2012Q4

REPORT INFORMATION
  Report Type: 
  Country: US (occurrence: US)
  Receive Date: 20121218
  Receipt Date: 20121218
  Transmission Date: 20130627
  Serious: No
  Sender: FDA-Public Use
  Company Number: US-BRISTOL-MYERS SQUIBB COMPANY-16677635

PATIENT
  Age: 42 Year
  Sex: Male

DRUGS (4)
  1. ABILIFY [Suspect]
     Indication: SCHIZOPHRENIA
     Dosage: Dose reduced to 15mg
     Dates: start: 201201
  2. PAROXETINE [Suspect]
  3. PAXIL [Concomitant]
     Indication: ANXIETY
  4. ZYPREXA [Concomitant]

REACTIONS (2)
  - Confusional state [Recovered/Resolved]
  - Depression [Unknown]
